FAERS Safety Report 6761943-7 (Version None)
Quarter: 2010Q2

REPORT INFORMATION
  Report Type: 
  Country: None (occurrence: None)
  Receive Date: 20100609
  Receipt Date: 20090813
  Transmission Date: 20101027
  Serious: No
  Sender: FDA-Public Use
  Company Number: US-KINGPHARMUSA00001-K200901007

PATIENT
  Sex: Female

DRUGS (1)
  1. CORTISPORIN [Suspect]
     Dosage: UNK
     Route: 031

REACTIONS (2)
  - INCORRECT ROUTE OF DRUG ADMINISTRATION [None]
  - NO ADVERSE EVENT [None]
